FAERS Safety Report 7782410-8 (Version None)
Quarter: 2011Q3

REPORT INFORMATION
  Report Type: 
  Country: None (occurrence: None)
  Receive Date: 20110927
  Receipt Date: 20090423
  Transmission Date: 20111222
  Serious: Yes (Hospitalization, Other)
  Sender: FDA-Public Use
  Company Number: PHHY2010TW37701

PATIENT
  Sex: Female

DRUGS (1)
  1. GLEEVEC [Suspect]
     Indication: GASTROINTESTINAL STROMAL TUMOUR
     Dosage: 400 MG, UNK
     Route: 048
     Dates: start: 20080730

REACTIONS (18)
  - OEDEMA PERIPHERAL [None]
  - CALCULUS URETERIC [None]
  - FATIGUE [None]
  - URETERITIS [None]
  - ERYTHEMA [None]
  - ASTHMA [None]
  - PAIN [None]
  - RASH [None]
  - DYSURIA [None]
  - PRURITUS [None]
  - NEPHROLITHIASIS [None]
  - URINARY TRACT INFLAMMATION [None]
  - ABDOMINAL PAIN [None]
  - DRY SKIN [None]
  - RESPIRATORY RATE INCREASED [None]
  - RENAL IMPAIRMENT [None]
  - MUSCLE SPASMS [None]
  - PAIN IN EXTREMITY [None]
